FAERS Safety Report 10330256 (Version 3)
Quarter: 2014Q3

REPORT INFORMATION
  Report Type: Report from Study
  Country: CA (occurrence: CA)
  Receive Date: 20140721
  Receipt Date: 20140811
  Transmission Date: 20150326
  Serious: Yes (Death, Hospitalization)
  Sender: FDA-Public Use
  Company Number: CA-ROCHE-1404777

PATIENT
  Age: 53 Year
  Sex: Female

DRUGS (5)
  1. TECTA [Concomitant]
     Active Substance: PANTOPRAZOLE MAGNESIUM
     Indication: GASTRIC DISORDER
  2. ACTEMRA [Suspect]
     Active Substance: TOCILIZUMAB
     Indication: RHEUMATOID ARTHRITIS
     Route: 042
     Dates: start: 20140228
  3. PREDNISONE. [Concomitant]
     Active Substance: PREDNISONE
  4. LEVOTHYROXINE [Concomitant]
     Active Substance: LEVOTHYROXINE
     Indication: THYROID DISORDER
  5. ACTEMRA [Suspect]
     Active Substance: TOCILIZUMAB
     Route: 042
     Dates: start: 20140326, end: 20140423

REACTIONS (11)
  - Hip fracture [Fatal]
  - Acute respiratory distress syndrome [Unknown]
  - Gastrooesophageal reflux disease [Unknown]
  - Fall [Unknown]
  - Interstitial lung disease [Fatal]
  - Pulmonary hypertension [Unknown]
  - Right ventricular failure [Fatal]
  - Sepsis [Unknown]
  - Multi-organ disorder [Fatal]
  - Pneumonia [Fatal]
  - Bacterial infection [Recovering/Resolving]

NARRATIVE: CASE EVENT DATE: 201404
